FAERS Safety Report 18918554 (Version 1)
Quarter: 2021Q1

REPORT INFORMATION
  Report Type: Spontaneous
  Country: GB (occurrence: GB)
  Receive Date: 20210220
  Receipt Date: 20210220
  Transmission Date: 20210420
  Serious: Yes (Hospitalization, Other)
  Sender: FDA-Public Use
  Company Number: GB-AUROBINDO-AUR-APL-2021-006808

PATIENT
  Age: 43 Year
  Sex: Female

DRUGS (5)
  1. PROPRANOLOL [Concomitant]
     Active Substance: PROPRANOLOL HYDROCHLORIDE
     Indication: ANXIETY
     Dosage: 1 DOSAGE FORM, TWO TIMES A DAY
     Route: 065
  2. MIRTAZAPINE FILM?COATED TABLETS 45MG [Suspect]
     Active Substance: MIRTAZAPINE
     Indication: ANXIETY
  3. TOPIRAMATE. [Concomitant]
     Active Substance: TOPIRAMATE
     Indication: MIGRAINE
     Dosage: 1 DOSAGE FORM, TWO TIMES A DAY
     Route: 065
  4. MIRTAZAPINE FILM?COATED TABLETS 45MG [Suspect]
     Active Substance: MIRTAZAPINE
     Indication: DEPRESSION
     Dosage: 1 DOSAGE FORM, ONCE A DAY, AT NIGHT
     Route: 065
  5. SUMATRIPTAN. [Suspect]
     Active Substance: SUMATRIPTAN
     Indication: MIGRAINE
     Dosage: 2 DOSAGE FORM, PRN
     Route: 065

REACTIONS (1)
  - Seizure [Recovering/Resolving]
